FAERS Safety Report 5914465-7 (Version None)
Quarter: 2008Q4

REPORT INFORMATION
  Report Type: 
  Country: None (occurrence: None)
  Receive Date: 20081007
  Receipt Date: 20080926
  Transmission Date: 20090506
  Serious: Yes (Hospitalization)
  Sender: FDA-Public Use
  Company Number: RENA-1000165

PATIENT
  Age: 58 Year
  Sex: Female
  Weight: 62.5 kg

DRUGS (10)
  1. RENAGEL [Suspect]
     Indication: HYPERPHOSPHATAEMIA
     Dosage: 1.6 G, TID, ORAL; 1.6 G, ORAL
     Route: 048
     Dates: start: 20070101
  2. RENAGEL [Suspect]
     Indication: HYPERPHOSPHATAEMIA
     Dosage: 1.6 G, TID, ORAL; 1.6 G, ORAL
     Route: 048
     Dates: start: 20080623
  3. BACITRACIN [Suspect]
     Indication: DRUG USE FOR UNKNOWN INDICATION
     Dosage: 1 U, QD, TOPICAL
     Route: 061
  4. EPOGEN (EPOETIN ALFA) UNKNOWN [Concomitant]
  5. ANASTROZOLE (ANASTROZOLE) UNKNOWN [Concomitant]
  6. CLONIDINE (CLONIDINE) UNKNOWN [Concomitant]
  7. ATIVAN [Concomitant]
  8. ZOLOFT [Concomitant]
  9. SODIUM BICARBONATE (SODIUM BICARBONATE) UNKNOWN [Concomitant]
  10. AMBIEN [Concomitant]

REACTIONS (8)
  - ABDOMINAL ABSCESS [None]
  - BLOOD PHOSPHORUS INCREASED [None]
  - BLOOD PRESSURE SYSTOLIC INCREASED [None]
  - DIVERTICULITIS [None]
  - EXCORIATION [None]
  - HYPOPHAGIA [None]
  - IMPAIRED HEALING [None]
  - NAUSEA [None]
